FAERS Safety Report 10511379 (Version 2)
Quarter: 2015Q1

REPORT INFORMATION
  Report Type: Spontaneous
  Country: US (occurrence: US)
  Receive Date: 20141010
  Receipt Date: 20150106
  Transmission Date: 20150720
  Serious: Yes (Other)
  Sender: FDA-Public Use
  Company Number: US-BAYER-2014-148010

PATIENT
  Age: 51 Year
  Sex: Female
  Weight: 86.17 kg

DRUGS (2)
  1. MIRENA [Suspect]
     Active Substance: LEVONORGESTREL
     Indication: MENORRHAGIA
  2. MIRENA [Suspect]
     Active Substance: LEVONORGESTREL
     Indication: CONTRACEPTION
     Dosage: 20 MCG/24HR, CONT
     Route: 015
     Dates: start: 20130930, end: 20140929

REACTIONS (5)
  - Postmenopausal haemorrhage [None]
  - Unintentional medical device removal [None]
  - Cervical polyp [None]
  - Menstruation irregular [None]
  - Procedural haemorrhage [None]

NARRATIVE: CASE EVENT DATE: 20140113
